FAERS Safety Report 9885207 (Version 1)
Quarter: 2014Q1

REPORT INFORMATION
  Report Type: Spontaneous
  Country: US (occurrence: None)
  Receive Date: 20140207
  Receipt Date: 20140207
  Transmission Date: 20141002
  Serious: Yes (Other)
  Sender: FDA-Public Use
  Company Number: None

PATIENT
  Age: 65 Year
  Sex: Female

DRUGS (1)
  1. DEPO-MEDROL [Suspect]
     Route: 042

REACTIONS (3)
  - Medication error [None]
  - Inappropriate schedule of drug administration [None]
  - No adverse event [None]
